FAERS Safety Report 5070290-3 (Version None)
Quarter: 2006Q3

REPORT INFORMATION
  Report Type: 
  Country: None (occurrence: None)
  Receive Date: 20060714
  Receipt Date: 20060412
  Transmission Date: 20061208
  Serious: No
  Sender: FDA-Public Use
  Company Number: 2006SP001660

PATIENT
  Age: 46 Year
  Sex: Female
  Weight: 91.6266 kg

DRUGS (3)
  1. LUNESTA [Suspect]
     Indication: RAPID EYE MOVEMENTS SLEEP ABNORMAL
     Dosage: 3 MG;HS;ORAL
     Route: 048
     Dates: start: 20060401
  2. ADVAIR DISKUS 100/50 [Concomitant]
  3. REMERON [Concomitant]

REACTIONS (3)
  - DYSPNOEA [None]
  - INSOMNIA [None]
  - STOMACH DISCOMFORT [None]
